FAERS Safety Report 5147574-3 (Version None)
Quarter: 2006Q4

REPORT INFORMATION
  Report Type: 
  Country: None (occurrence: None)
  Receive Date: 20061106
  Receipt Date: 20061024
  Transmission Date: 20070319
  Serious: Yes (Hospitalization, Other)
  Sender: FDA-Public Use
  Company Number: 2006129875

PATIENT
  Age: 57 Year
  Sex: Female
  Weight: 59.8748 kg

DRUGS (8)
  1. DILANTIN [Suspect]
     Indication: CONVULSION
     Dosage: 300MG ALTERNATING WITH 200MG (1 D)
  2. LEXAPRO [Suspect]
     Indication: DEPRESSION
     Dosage: 20 MG (1 D), ORAL
     Route: 048
     Dates: start: 20051209, end: 20060828
  3. VERAPAMIL [Concomitant]
  4. ZOCOR [Concomitant]
  5. TRAZODONE HCL [Concomitant]
  6. ZANTAC [Concomitant]
  7. TRICOR [Concomitant]
  8. TOPAMAX [Concomitant]

REACTIONS (10)
  - ANOREXIA [None]
  - ANTICONVULSANT DRUG LEVEL ABOVE THERAPEUTIC [None]
  - CHRONIC OBSTRUCTIVE PULMONARY DISEASE [None]
  - CONDITION AGGRAVATED [None]
  - CONVULSION [None]
  - ENURESIS [None]
  - PLATELET COUNT INCREASED [None]
  - SOMNOLENCE [None]
  - STATUS EPILEPTICUS [None]
  - THERAPEUTIC AGENT TOXICITY [None]
